FAERS Safety Report 25946100 (Version 1)
Quarter: 2025Q4

REPORT INFORMATION
  Report Type: Spontaneous
  Country: JP (occurrence: JP)
  Receive Date: 20251021
  Receipt Date: 20251021
  Transmission Date: 20260119
  Serious: Yes (Hospitalization, Other)
  Sender: BAUSCH AND LOMB
  Company Number: JP-BAUSCH-BH-2025-019038

PATIENT
  Age: 76 Year
  Sex: Male
  Weight: 40 kg

DRUGS (1)
  1. MOVIPREP [Suspect]
     Active Substance: ASCORBIC ACID\POLYETHYLENE GLYCOL 3350\POTASSIUM CHLORIDE\SODIUM ASCORBATE\SODIUM CHLORIDE\SODIUM SU
     Indication: Bowel preparation
     Dosage: (EARLY MORNING WITH 2L OF WATER)

REACTIONS (6)
  - Altered state of consciousness [Recovered/Resolved]
  - Blood antidiuretic hormone increased [Recovered/Resolved]
  - Urine sodium increased [Recovered/Resolved]
  - Hyponatraemia [Recovered/Resolved]
  - Seizure [Recovered/Resolved]
  - Vomiting [Recovered/Resolved]
